FAERS Safety Report 8790585 (Version 1)
Quarter: 2012Q4

REPORT INFORMATION
  Report Type: Spontaneous
  Country: US (occurrence: None)
  Receive Date: 20120912
  Receipt Date: 20120912
  Transmission Date: 20130627
  Serious: Yes (Other)
  Sender: FDA-Public Use
  Company Number: None

PATIENT
  Age: 59 Year
  Sex: Male
  Weight: 58.06 kg

DRUGS (1)
  1. COPAXONE TEVA [Suspect]
     Indication: MS
     Dosage: 20 mg, once / Day
     Dates: start: 20120524

REACTIONS (1)
  - Injection site vesicles [None]
